FAERS Safety Report 23906077 (Version 12)
Quarter: 2025Q3

REPORT INFORMATION
  Report Type: Report from Study
  Country: CA (occurrence: CA)
  Receive Date: 20240527
  Receipt Date: 20250923
  Transmission Date: 20251021
  Serious: Yes (Hospitalization, Other)
  Sender: BIOGEN
  Company Number: CA-BIOGEN-2023BI01226118

PATIENT
  Age: 53 Year
  Sex: Female

DRUGS (10)
  1. TYSABRI [Suspect]
     Active Substance: NATALIZUMAB
     Indication: Multiple sclerosis
     Route: 050
     Dates: start: 20170928
  2. TYSABRI [Suspect]
     Active Substance: NATALIZUMAB
     Route: 050
     Dates: start: 20170928
  3. TYSABRI [Suspect]
     Active Substance: NATALIZUMAB
     Route: 050
     Dates: start: 20170928
  4. TYSABRI [Suspect]
     Active Substance: NATALIZUMAB
     Route: 050
     Dates: start: 20170928, end: 20240829
  5. TYSABRI [Suspect]
     Active Substance: NATALIZUMAB
     Route: 050
     Dates: start: 20240829
  6. TYSABRI [Suspect]
     Active Substance: NATALIZUMAB
     Route: 050
  7. TYSABRI [Suspect]
     Active Substance: NATALIZUMAB
     Route: 050
     Dates: start: 20170929
  8. TYSABRI [Suspect]
     Active Substance: NATALIZUMAB
     Route: 050
     Dates: start: 20170928
  9. TYSABRI [Suspect]
     Active Substance: NATALIZUMAB
     Route: 050
     Dates: start: 20250218
  10. TYSABRI [Suspect]
     Active Substance: NATALIZUMAB
     Route: 050
     Dates: start: 20170928

REACTIONS (12)
  - Lung neoplasm malignant [Not Recovered/Not Resolved]
  - Secondary immunodeficiency [Unknown]
  - Multiple sclerosis relapse [Not Recovered/Not Resolved]
  - Lung cyst [Not Recovered/Not Resolved]
  - Dermatitis [Recovered/Resolved]
  - Nasopharyngitis [Recovered/Resolved]
  - Stress [Not Recovered/Not Resolved]
  - Prescribed underdose [Unknown]
  - Radiation skin injury [Unknown]
  - Abnormal loss of weight [Not Recovered/Not Resolved]
  - Urinary tract infection [Not Recovered/Not Resolved]
  - Fatigue [Not Recovered/Not Resolved]

NARRATIVE: CASE EVENT DATE: 20170928
